FAERS Safety Report 23226945 (Version 2)
Quarter: 2024Q2

REPORT INFORMATION
  Report Type: Spontaneous
  Country: FR (occurrence: FR)
  Receive Date: 20231124
  Receipt Date: 20240430
  Transmission Date: 20240716
  Serious: Yes (Death)
  Sender: FDA-Public Use
  Company Number: FR-BAYER-2023A162182

PATIENT
  Age: 54 Year
  Sex: Female
  Weight: 52 kg

DRUGS (1)
  1. STIVARGA [Suspect]
     Active Substance: REGORAFENIB\REGORAFENIB MONOHYDRATE
     Dosage: 80 MG, QD

REACTIONS (3)
  - Neoplasm malignant [Fatal]
  - Asthenia [Recovered/Resolved]
  - Off label use [None]

NARRATIVE: CASE EVENT DATE: 20230403
